FAERS Safety Report 4941108-1 (Version None)
Quarter: 2006Q1

REPORT INFORMATION
  Report Type: 
  Country: None (occurrence: None)
  Receive Date: 20060313
  Receipt Date: 20051025
  Transmission Date: 20060701
  Serious: Yes (Other)
  Sender: FDA-Public Use
  Company Number: US-GLAXOSMITHKLINE-A0579570A

PATIENT
  Age: 59 Year
  Sex: Female

DRUGS (14)
  1. PAXIL [Suspect]
     Indication: ORTHOSTATIC INTOLERANCE
     Dosage: 5MG PER DAY
     Route: 048
  2. PAXIL [Suspect]
     Indication: FIBROMYALGIA
     Dosage: 5MG PER DAY
     Route: 048
     Dates: start: 20060226, end: 20060226
  3. TENORMIN [Concomitant]
  4. VALIUM [Concomitant]
  5. PROTONIX [Concomitant]
  6. PROAMATINE [Concomitant]
  7. CORTEF [Concomitant]
  8. TINCTURE OF BELLADONNA [Concomitant]
  9. ECOTRIN [Concomitant]
  10. TYLENOL (CAPLET) [Concomitant]
  11. MAXAIR [Concomitant]
  12. AZMACORT [Concomitant]
  13. MIDRIN [Concomitant]
  14. ANTIVERT [Concomitant]

REACTIONS (4)
  - ASTHENIA [None]
  - HYPOGLYCAEMIA [None]
  - THERAPEUTIC RESPONSE UNEXPECTED [None]
  - VISUAL DISTURBANCE [None]
